FAERS Safety Report 8588043-8 (Version None)
Quarter: 2012Q3

REPORT INFORMATION
  Report Type: 
  Country: None (occurrence: None)
  Receive Date: 20120813
  Receipt Date: 20120705
  Transmission Date: 20120928
  Serious: Yes (Hospitalization)
  Sender: FDA-Public Use
  Company Number: US-BAYER-2012-059908

PATIENT
  Age: 32 Year
  Sex: Female
  Weight: 68.027 kg

DRUGS (7)
  1. FLUTICASONE PROPIONATE [Concomitant]
  2. PROTONIX [Concomitant]
  3. AZELEX [Concomitant]
  4. MIRENA [Suspect]
     Indication: ENDOMETRIOSIS
     Dosage: 20 MCG/24HR, CONT
     Route: 015
     Dates: start: 20111024, end: 20120518
  5. RHINOCORT [Concomitant]
  6. SYSTANE [MACROGOL,PROPYLENE GLYCOL] [Concomitant]
  7. MIRENA [Suspect]
     Indication: MENORRHAGIA

REACTIONS (4)
  - BACK PAIN [None]
  - ADVERSE EVENT [None]
  - PELVIC PAIN [None]
  - UTERINE PERFORATION [None]
